FAERS Safety Report 11544580 (Version 1)
Quarter: 2015Q3

REPORT INFORMATION
  Report Type: Spontaneous
  Country: DE (occurrence: DE)
  Receive Date: 20150924
  Receipt Date: 20150924
  Transmission Date: 20151125
  Serious: Yes (Congenital Anomaly, Other)
  Sender: FDA-Public Use
  Company Number: DE-TEVA-594109GER

PATIENT
  Age: 0 Year
  Sex: Female

DRUGS (6)
  1. FOLSAEURE [Concomitant]
     Active Substance: FOLIC ACID
     Indication: PROPHYLAXIS OF NEURAL TUBE DEFECT
     Route: 064
  2. CITALOPRAM [Suspect]
     Active Substance: CITALOPRAM HYDROBROMIDE
     Indication: DEPRESSION
     Dosage: 20 [MG/D (BIS 10 MG/D) ]/ TILL WEEK 16: 20 MG/D; TILL WEEK 27 15 MG/D, THEN 10 MG/D
     Route: 064
     Dates: start: 20140902, end: 20150611
  3. AMPICILLIN [Suspect]
     Active Substance: AMPICILLIN
     Indication: STREPTOCOCCUS TEST POSITIVE
     Route: 064
  4. AMPICILLIN [Suspect]
     Active Substance: AMPICILLIN
     Indication: LISTERIOSIS
     Dosage: 3000 MILLIGRAM DAILY;
     Route: 064
     Dates: start: 20150324, end: 20150405
  5. SOBELIN [Suspect]
     Active Substance: CLINDAMYCIN HYDROCHLORIDE
     Indication: VAGINAL PH INCREASED
     Route: 064
  6. CEFUROXIM [Concomitant]
     Active Substance: CEFUROXIME
     Indication: URINARY TRACT INFECTION BACTERIAL
     Dosage: 1000 MILLIGRAM DAILY;
     Route: 064
     Dates: start: 20150513, end: 20150522

REACTIONS (3)
  - Foetal exposure during pregnancy [Unknown]
  - Spinal muscular atrophy [Not Recovered/Not Resolved]
  - Congenital lymphoedema [Unknown]
